FAERS Safety Report 8960781 (Version 2)
Quarter: 2013Q4

REPORT INFORMATION
  Report Type: Spontaneous
  Country: US (occurrence: None)
  Receive Date: 20121120
  Receipt Date: 20131108
  Transmission Date: 20140711
  Serious: Yes (Other)
  Sender: FDA-Public Use
  Company Number: 2012033981

PATIENT
  Sex: Female
  Weight: 104.33 kg

DRUGS (18)
  1. HIZENTRA [Suspect]
     Indication: IMMUNODEFICIENCY COMMON VARIABLE
     Dosage: 1X / WEEK, 4 GM 20 ML VIAL ; INFUSE IN 4-6 SITES OVER 1-2 HOURS; STARTED IN JUL-2010 (SUBCUTANEOUS)
     Route: 058
  2. NOVOLIN [Suspect]
     Indication: BLOOD GLUCOSE INCREASED
     Route: 057
  3. ASPIRIN (ACETYLSALICYLIC ACID) [Concomitant]
  4. LIPITOR (ATORVASTATIN CALCIUM) [Concomitant]
  5. VITAMIN D (ERGOCALCIFEROL) [Concomitant]
  6. LISINOPRIL (LISINOPRIL) [Concomitant]
  7. VITAMIN D (ERGOCALCIFEROL) [Concomitant]
  8. LISINOPRIL (LISINOPRIL) [Concomitant]
  9. NYSTATIN (NYSTATIN) [Concomitant]
  10. EPIPEN (EPINEPHRINE) [Concomitant]
  11. ANASTROZOLE (ANASTROZOLE) [Concomitant]
  12. ANASTROZOLE (ANASTROZOLE) [Concomitant]
  13. GLIMEPIRIDE (GLIMEPIRIDE) [Concomitant]
  14. HYDROCHLOROTHIAZIDE (HYDROCHLOROTHIAZIDE) [Concomitant]
  15. DIPHENHYDRAMINE (HYDROCHLOROTHIAZIDE) [Concomitant]
  16. CALCIUM (CALCIUM) [Concomitant]
  17. NORVASC (AMLODIPINE) [Concomitant]
  18. ACETAMINOPHEN (PARACETAMOL) [Concomitant]

REACTIONS (5)
  - Injection site bruising [None]
  - Chills [None]
  - Back pain [None]
  - Dysgeusia [None]
  - Gingival bleeding [None]
